FAERS Safety Report 9792944 (Version 1)
Quarter: 2014Q1

REPORT INFORMATION
  Report Type: Spontaneous
  Country: US (occurrence: US)
  Receive Date: 20140102
  Receipt Date: 20140102
  Transmission Date: 20141002
  Serious: Yes (Hospitalization)
  Sender: FDA-Public Use
  Company Number: US-ABBVIE-13P-163-1184555-00

PATIENT
  Age: 70 Year
  Sex: Female
  Weight: 118.04 kg

DRUGS (6)
  1. HUMIRA [Suspect]
     Indication: RHEUMATOID ARTHRITIS
     Dates: end: 2013
  2. XELJANZ [Suspect]
     Indication: RHEUMATOID ARTHRITIS
     Dates: start: 20131101, end: 20131122
  3. METHOTREXATE [Suspect]
     Indication: RHEUMATOID ARTHRITIS
     Dates: end: 2013
  4. PLAQUENIL [Suspect]
     Indication: RHEUMATOID ARTHRITIS
     Dates: end: 2013
  5. ZOCOR [Concomitant]
     Indication: BLOOD CHOLESTEROL INCREASED
  6. EFFEXOR [Concomitant]
     Indication: DEPRESSION

REACTIONS (15)
  - Joint effusion [Unknown]
  - Pyrexia [Recovered/Resolved]
  - Drug ineffective [Unknown]
  - Urinary tract infection [Unknown]
  - Rheumatoid factor increased [Unknown]
  - Nasopharyngitis [Not Recovered/Not Resolved]
  - Abasia [Unknown]
  - Weight bearing difficulty [Unknown]
  - Pain [Unknown]
  - Local swelling [Unknown]
  - Chills [Unknown]
  - Hypotension [Unknown]
  - Mobility decreased [Unknown]
  - Arthritis bacterial [Unknown]
  - Erythema [Unknown]
